FAERS Safety Report 11115820 (Version 1)
Quarter: 2015Q2

REPORT INFORMATION
  Report Type: Spontaneous
  Country: FR (occurrence: FR)
  Receive Date: 20150515
  Receipt Date: 20150515
  Transmission Date: 20150821
  Serious: Yes (Hospitalization)
  Sender: FDA-Public Use
  Company Number: FR-PFIZER INC-2015162904

PATIENT
  Age: 82 Year
  Sex: Female

DRUGS (8)
  1. PAROXETINE [Suspect]
     Active Substance: PAROXETINE\PAROXETINE HYDROCHLORIDE
     Dosage: 10 MG, 1X/DAY
     Dates: start: 20150206, end: 20150209
  2. PAROXETINE [Suspect]
     Active Substance: PAROXETINE\PAROXETINE HYDROCHLORIDE
     Dosage: 10 MG, 2X/DAY
     Dates: start: 20150210, end: 20150219
  3. XANAX [Suspect]
     Active Substance: ALPRAZOLAM
     Dosage: 1.5 MG, DAILY
     Dates: start: 20150210, end: 20150215
  4. XANAX [Suspect]
     Active Substance: ALPRAZOLAM
     Dosage: 0.5 MG, DAILY
     Dates: start: 20150216, end: 20150222
  5. ATARAX [Concomitant]
     Active Substance: HYDROXYZINE\HYDROXYZINE HYDROCHLORIDE
     Dosage: 50 MG, DAILY
     Dates: start: 20150210
  6. XANAX [Suspect]
     Active Substance: ALPRAZOLAM
     Dosage: 0.375 MG, DAILY
     Dates: start: 20150223
  7. XANAX [Suspect]
     Active Substance: ALPRAZOLAM
     Dosage: 1.5 MG, DAILY
     Dates: start: 20150131, end: 20150206
  8. IMOVANE [Concomitant]
     Active Substance: ZOPICLONE
     Dosage: 7.5 MG, DAILY
     Dates: start: 20150206

REACTIONS (1)
  - Skin exfoliation [Recovered/Resolved]

NARRATIVE: CASE EVENT DATE: 20150216
